FAERS Safety Report 18664286 (Version 1)
Quarter: 2020Q4

REPORT INFORMATION
  Report Type: Spontaneous
  Country: DK (occurrence: DK)
  Receive Date: 20201225
  Receipt Date: 20201225
  Transmission Date: 20210114
  Serious: Yes (Hospitalization, Other)
  Sender: FDA-Public Use
  Company Number: DK-AUROBINDO-AUR-APL-2020-063043

PATIENT
  Sex: Female
  Weight: 86 kg

DRUGS (5)
  1. BONVIVA [Suspect]
     Active Substance: IBANDRONATE SODIUM
     Indication: OSTEOPOROSIS
     Dosage: UNK (STRENGTH: 150 MG, DOSE UNKNOWN)
     Route: 048
  2. SAROTEN [Concomitant]
     Active Substance: AMITRIPTYLINE
     Indication: PAIN
     Dosage: UNK
     Route: 065
  3. PANODIL [Concomitant]
     Active Substance: ACETAMINOPHEN
     Indication: PAIN
     Dosage: UNK
     Route: 065
  4. ALENDRONIC ACID TABLETS [Suspect]
     Active Substance: ALENDRONIC ACID
     Indication: OSTEOPOROSIS
     Dosage: UNK (STRENGTH: UNKNOWN, DOSAGE: UNKNOWN)
     Route: 048
  5. CALCIUM + VITAMIN D [Concomitant]
     Active Substance: CALCIUM\VITAMIN D
     Indication: VITAMIN SUPPLEMENTATION
     Dosage: UNK
     Route: 065

REACTIONS (4)
  - Radius fracture [Unknown]
  - Ankle fracture [Unknown]
  - Ulna fracture [Unknown]
  - Atypical femur fracture [Not Recovered/Not Resolved]

NARRATIVE: CASE EVENT DATE: 201811
